FAERS Safety Report 15839123 (Version 5)
Quarter: 2020Q4

REPORT INFORMATION
  Report Type: Report from Study
  Country: US (occurrence: US)
  Receive Date: 20190117
  Receipt Date: 20201005
  Transmission Date: 20210113
  Serious: Yes (Death, Life-Threatening, Hospitalization, Other)
  Sender: FDA-Public Use
  Company Number: US-MYLANLABS-2018M1091264

PATIENT
  Age: 37 Year
  Sex: Male
  Weight: 68.43 kg

DRUGS (118)
  1. TOBI PODHALER [Suspect]
     Active Substance: TOBRAMYCIN
     Indication: PSEUDOMONAS INFECTION
  2. TOBI PODHALER [Suspect]
     Active Substance: TOBRAMYCIN
     Dosage: UNK
     Route: 055
     Dates: start: 20160823, end: 20160920
  3. CAYSTON [Suspect]
     Active Substance: AZTREONAM
     Dosage: UNK
     Route: 065
     Dates: start: 20161125, end: 20161223
  4. LEVAQUIN [Concomitant]
     Active Substance: LEVOFLOXACIN
     Indication: COUGH
     Dosage: 750 MILLIGRAM, BID
     Route: 048
     Dates: start: 20171020, end: 20171108
  5. FLONASE                            /00908302/ [Concomitant]
     Active Substance: MOMETASONE FUROATE
     Dosage: 16 GRAM, HS (16 G (50UG), QHS)
     Route: 055
  6. VITAMIIN C [Concomitant]
     Active Substance: ASCORBIC ACID
     Indication: NUTRITIONAL SUPPLEMENTATION
     Dosage: 1 DOSAGE FORM, QD
     Route: 048
     Dates: start: 20110613, end: 20171215
  7. ALBUTEROL                          /00139501/ [Concomitant]
     Active Substance: ALBUTEROL
     Indication: COUGH
  8. K-DUR [Concomitant]
     Active Substance: POTASSIUM CHLORIDE
     Indication: SUPPLEMENTATION THERAPY
     Dosage: 60 MG, FEEDING TUBE
     Route: 065
     Dates: start: 20180120
  9. CIPRO [Concomitant]
     Active Substance: CIPROFLOXACIN HYDROCHLORIDE
     Dosage: UNK
     Route: 065
     Dates: start: 20160804, end: 20160813
  10. CHOLECALCIFEROL [Concomitant]
     Active Substance: CHOLECALCIFEROL
     Indication: VITAMIN D DEFICIENCY
     Dosage: (10,000 UNITS) , QD
     Route: 048
  11. SINEQUAN [Concomitant]
     Active Substance: DOXEPIN HYDROCHLORIDE
     Indication: AGITATION
     Dosage: UNK
     Route: 065
     Dates: start: 20150312, end: 20161006
  12. SODIUM CHLORIDE. [Concomitant]
     Active Substance: SODIUM CHLORIDE
     Indication: CYSTIC FIBROSIS
     Dosage: UNK
     Route: 065
     Dates: start: 20160218, end: 20180113
  13. TOBI PODHALER [Suspect]
     Active Substance: TOBRAMYCIN
     Indication: CYSTIC FIBROSIS
     Dosage: UNK
  14. VORICONAZOLE. [Suspect]
     Active Substance: VORICONAZOLE
     Dosage: 300 MILLIGRAM, BID
     Route: 042
     Dates: start: 20171113
  15. BETHKIS [Suspect]
     Active Substance: TOBRAMYCIN
     Indication: CYSTIC FIBROSIS
     Dosage: UNK
     Route: 065
     Dates: start: 20171123, end: 20171128
  16. OXYGEN. [Concomitant]
     Active Substance: OXYGEN
     Indication: INFECTIVE PULMONARY EXACERBATION OF CYSTIC FIBROSIS
     Dosage: UNK
     Route: 065
     Dates: start: 20150713, end: 20161001
  17. OXYGEN. [Concomitant]
     Active Substance: OXYGEN
     Dosage: UNK
     Route: 065
     Dates: start: 20161020, end: 20171108
  18. SEREVENT DISKUS [Concomitant]
     Active Substance: SALMETEROL XINAFOATE
     Indication: INFECTIVE PULMONARY EXACERBATION OF CYSTIC FIBROSIS
     Dosage: 50 UG, BID
     Route: 055
     Dates: start: 20151015, end: 20171128
  19. BACTRIM DS [Concomitant]
     Active Substance: SULFAMETHOXAZOLE\TRIMETHOPRIM
     Indication: BRONCHITIS
     Dosage: 800-160 MG, BID
     Route: 065
     Dates: start: 20170914, end: 20171104
  20. ZERBAXA [Concomitant]
     Active Substance: CEFTOLOZANE SULFATE\TAZOBACTAM SODIUM
     Indication: PRODUCT USED FOR UNKNOWN INDICATION
     Dosage: 1.5 G, UNK (IV PIGGY BACK INFUSED OVER 3 HOURS EVERY 8 HOURS)
     Route: 042
     Dates: start: 20171217, end: 20171218
  21. PROPOFOL. [Concomitant]
     Active Substance: PROPOFOL
     Dosage: UNK
     Route: 065
     Dates: start: 20180119
  22. ACTIGALL [Concomitant]
     Active Substance: URSODIOL
     Dosage: UNK
     Route: 065
     Dates: start: 20151015, end: 20171212
  23. APRESOLINE HYDROCHLORIDE [Concomitant]
     Active Substance: HYDRALAZINE HYDROCHLORIDE
     Indication: PRODUCT USED FOR UNKNOWN INDICATION
     Dosage: (0.5-1 ML), Q6H
     Route: 065
  24. MIRALAX [Concomitant]
     Active Substance: POLYETHYLENE GLYCOL 3350
     Indication: INFECTIVE PULMONARY EXACERBATION OF CYSTIC FIBROSIS
     Dosage: 850 MILLIGRAM, QD
     Route: 048
     Dates: start: 20161206
  25. ALBUTEROL                          /00139501/ [Concomitant]
     Active Substance: ALBUTEROL
     Indication: CYSTIC FIBROSIS
  26. DUONEB [Concomitant]
     Active Substance: ALBUTEROL SULFATE\IPRATROPIUM BROMIDE
     Dosage: UNK
     Route: 065
     Dates: start: 20180102
  27. PULMICORT TURBUHALER [Concomitant]
     Active Substance: BUDESONIDE
     Dosage: 0.5 MILLIGRAM, BID
     Route: 055
     Dates: start: 20171212
  28. ZYPREXA [Concomitant]
     Active Substance: OLANZAPINE
     Indication: ATTENTION DEFICIT HYPERACTIVITY DISORDER
     Dosage: 5 MILLIGRAM
     Route: 048
     Dates: start: 20180103
  29. CIPRO [Concomitant]
     Active Substance: CIPROFLOXACIN HYDROCHLORIDE
     Indication: INFECTIVE PULMONARY EXACERBATION OF CYSTIC FIBROSIS
     Dosage: UNK
     Route: 065
     Dates: start: 20160303, end: 20160313
  30. LOVENOX [Concomitant]
     Active Substance: ENOXAPARIN SODIUM
     Indication: PROPHYLAXIS
     Dosage: 40 MILLIGRAM, QD, (40 MG/0.4ML)
     Route: 042
     Dates: start: 20180123
  31. URSODIOL. [Concomitant]
     Active Substance: URSODIOL
     Indication: INFECTIVE PULMONARY EXACERBATION OF CYSTIC FIBROSIS
     Dosage: 500 MILLIGRAM
     Route: 048
     Dates: start: 20171211
  32. HEPARIN [Concomitant]
     Active Substance: HEPARIN SODIUM
     Indication: PROPHYLAXIS
     Dosage: UNK
     Route: 065
     Dates: start: 20180119, end: 20180125
  33. TOBI PODHALER [Suspect]
     Active Substance: TOBRAMYCIN
     Dosage: UNK
     Route: 055
     Dates: start: 20161028, end: 20161124
  34. TOBI PODHALER [Suspect]
     Active Substance: TOBRAMYCIN
     Dosage: 112 MG, TID ALTERNATE MONTHS
     Route: 055
     Dates: start: 20171128, end: 20171212
  35. CAYSTON [Suspect]
     Active Substance: AZTREONAM
     Dosage: UNK
     Route: 065
     Dates: start: 20170722, end: 20170819
  36. AQUADEKS                           /07679501/ [Concomitant]
     Active Substance: MINERALS\VITAMINS
     Indication: CYSTIC FIBROSIS
     Dosage: UNK
     Route: 065
     Dates: start: 20130726, end: 20170512
  37. MULTIVITAMINS                      /00116001/ [Concomitant]
     Active Substance: VITAMINS
     Indication: PRODUCT USED FOR UNKNOWN INDICATION
     Dosage: 1 DOSAGE FORM, QD
     Route: 048
  38. ATARAX [Concomitant]
     Active Substance: HYDROXYZINE HYDROCHLORIDE
     Dosage: 1 DOSAGE FORM, TID
     Route: 048
  39. TYLENOL [Concomitant]
     Active Substance: ACETAMINOPHEN
     Indication: PAIN
     Dosage: 1 DOSAGE FORM, Q4H
     Route: 054
  40. PULMOZYME [Concomitant]
     Active Substance: DORNASE ALFA
     Indication: INFECTIVE PULMONARY EXACERBATION OF CYSTIC FIBROSIS
     Dosage: 2.5 ML, QD
     Route: 055
     Dates: start: 20150708
  41. NORVASC [Concomitant]
     Active Substance: AMLODIPINE BESYLATE
     Indication: PRODUCT USED FOR UNKNOWN INDICATION
     Dosage: 5 MG, QD
     Route: 048
     Dates: start: 20170927, end: 20171128
  42. ALBUTEROL                          /00139501/ [Concomitant]
     Active Substance: ALBUTEROL
     Indication: ASTHMA
     Dosage: 2.5 MILLIGRAM, PRN
     Route: 055
     Dates: start: 20170427, end: 20171104
  43. ZITHROMAX [Concomitant]
     Active Substance: AZITHROMYCIN DIHYDRATE
     Dosage: 500 MILLIGRAM, QOD (MONDAY, WEDNESDAY AND FRIDAY)
     Route: 048
     Dates: start: 20171229
  44. CIPRO [Concomitant]
     Active Substance: CIPROFLOXACIN HYDROCHLORIDE
     Dosage: UNK
     Route: 065
     Dates: start: 20160520, end: 20160602
  45. DOXEPIN [Concomitant]
     Active Substance: DOXEPIN
     Indication: ATTENTION DEFICIT HYPERACTIVITY DISORDER
     Dosage: 25 MILLIGRAM, BID
     Route: 048
     Dates: start: 20171221
  46. QVAR [Concomitant]
     Active Substance: BECLOMETHASONE DIPROPIONATE
     Indication: CYSTIC FIBROSIS
     Dosage: UNK
     Route: 065
     Dates: start: 20151104, end: 20170803
  47. NAFCILLIN [Concomitant]
     Active Substance: NAFCILLIN SODIUM
     Indication: CYSTIC FIBROSIS
     Dosage: UNK
     Route: 065
     Dates: start: 20160701, end: 20160707
  48. CAYSTON [Suspect]
     Active Substance: AZTREONAM
     Indication: PRODUCT USED FOR UNKNOWN INDICATION
     Dosage: UNK
     Route: 065
     Dates: start: 20160725, end: 20160822
  49. CAYSTON [Suspect]
     Active Substance: AZTREONAM
     Dosage: UNK
     Route: 065
     Dates: start: 20170527, end: 20170630
  50. FLONASE                            /00908302/ [Concomitant]
     Active Substance: MOMETASONE FUROATE
     Indication: CYSTIC FIBROSIS
     Dosage: UNK
     Route: 065
     Dates: start: 20151202, end: 20171215
  51. MIRALAX [Concomitant]
     Active Substance: POLYETHYLENE GLYCOL 3350
     Indication: PRODUCT USED FOR UNKNOWN INDICATION
     Dosage: 1 DF, QD
     Route: 048
  52. L-METHYLFOLATE [Concomitant]
     Active Substance: LEVOMEFOLIC ACID
     Indication: PRODUCT USED FOR UNKNOWN INDICATION
     Dosage: 7.5 MILLIGRAM, QD
     Route: 048
  53. ALBUTEROL                          /00139501/ [Concomitant]
     Active Substance: ALBUTEROL
     Indication: WHEEZING
  54. LANTUS [Concomitant]
     Active Substance: INSULIN GLARGINE
     Indication: BLOOD GLUCOSE DECREASED
     Dosage: UNK
     Route: 065
     Dates: start: 20180119
  55. HUMALOG [Concomitant]
     Active Substance: INSULIN LISPRO
     Dosage: (0-6 UNITS), QID
     Route: 058
  56. CEFTAZIDIME. [Concomitant]
     Active Substance: CEFTAZIDIME
     Indication: INFECTIVE PULMONARY EXACERBATION OF CYSTIC FIBROSIS
     Dosage: 4 G, UNK (PIGGY BACK INFUSED OVER 3 HOURS EVERY 8 HOURS)
     Route: 042
     Dates: start: 20180107
  57. CHOLECALCIFEROL [Concomitant]
     Active Substance: CHOLECALCIFEROL
     Indication: VITAMIN D DEFICIENCY
     Dosage: 25 DROPS
     Dates: start: 20171216
  58. CALCIUM CARBONATE. [Concomitant]
     Active Substance: CALCIUM CARBONATE
     Indication: SUPPLEMENTATION THERAPY
     Dosage: UNK
     Route: 065
     Dates: start: 20110613, end: 20171128
  59. TOBI PODHALER [Suspect]
     Active Substance: TOBRAMYCIN
     Dosage: UNK
     Route: 055
     Dates: start: 20170820, end: 20170916
  60. TOBI PODHALER [Suspect]
     Active Substance: TOBRAMYCIN
     Dosage: 112 MG, TID ALTERNATE MONTHS
     Route: 055
     Dates: start: 20171015, end: 20171104
  61. VORICONAZOLE. [Suspect]
     Active Substance: VORICONAZOLE
     Dosage: 260 MG, Q12H
     Route: 042
     Dates: start: 20171213, end: 20180102
  62. DELTASONE                          /00016001/ [Concomitant]
     Active Substance: DEXAMETHASONE
     Indication: INFECTIVE PULMONARY EXACERBATION OF CYSTIC FIBROSIS
     Dosage: 5 MG, UNK
     Route: 048
     Dates: start: 20170927, end: 20171105
  63. PRILOSEC [Concomitant]
     Active Substance: OMEPRAZOLE MAGNESIUM
     Indication: PRODUCT USED FOR UNKNOWN INDICATION
     Dosage: 20 MILLIGRAM, QD
     Route: 048
     Dates: start: 20160914, end: 20171104
  64. CREON [Concomitant]
     Active Substance: PANCRELIPASE AMYLASE\PANCRELIPASE LIPASE\PANCRELIPASE PROTEASE
     Indication: CYSTIC FIBROSIS
     Dosage: UNK, TID (TAKE 5 TO 6 CAPSULE CAPSULES BY MOUTH 3 TIMES A DAY WITH MEALS AND 5 WITH SNACKS (AVE)
     Route: 048
     Dates: start: 20151209, end: 20160804
  65. CREON [Concomitant]
     Active Substance: PANCRELIPASE AMYLASE\PANCRELIPASE LIPASE\PANCRELIPASE PROTEASE
     Dosage: UNK
     Route: 065
     Dates: start: 20151209, end: 20171222
  66. ATARAX [Concomitant]
     Active Substance: HYDROXYZINE HYDROCHLORIDE
     Indication: CYSTIC FIBROSIS
     Dosage: UNK
     Route: 065
     Dates: start: 20150921, end: 20171213
  67. TOBI [Concomitant]
     Active Substance: TOBRAMYCIN
     Indication: PRODUCT USED FOR UNKNOWN INDICATION
     Dosage: 300 MILLIGRAM, BID
     Route: 055
     Dates: start: 20171123, end: 20171220
  68. KEFLEX [Concomitant]
     Active Substance: CEPHALEXIN
     Indication: PRODUCT USED FOR UNKNOWN INDICATION
     Dosage: UNK
     Route: 065
  69. LISPRO INSULIN [Concomitant]
     Active Substance: INSULIN LISPRO
     Indication: BLOOD GLUCOSE DECREASED
     Dosage: 18 U, UNK
     Route: 058
     Dates: start: 20171229
  70. HUMALOG [Concomitant]
     Active Substance: INSULIN LISPRO
     Dosage: ONE UNIT FOR EVERY 50MG/DL
     Route: 058
  71. HUMALOG [Concomitant]
     Active Substance: INSULIN LISPRO
     Dosage: UNK
     Route: 065
     Dates: start: 20180106
  72. PULMICORT TURBUHALER [Concomitant]
     Active Substance: BUDESONIDE
     Indication: INFECTIVE PULMONARY EXACERBATION OF CYSTIC FIBROSIS
     Dosage: UNK
     Route: 065
     Dates: start: 20160222, end: 20171212
  73. VERSED [Concomitant]
     Active Substance: MIDAZOLAM HYDROCHLORIDE
     Indication: SEDATION
     Dosage: 2 MILLIGRAM, HR
     Route: 042
     Dates: start: 20180124
  74. CIPRO [Concomitant]
     Active Substance: CIPROFLOXACIN HYDROCHLORIDE
     Dosage: UNK
     Route: 065
     Dates: start: 20160428, end: 20160507
  75. CLONIDINE. [Concomitant]
     Active Substance: CLONIDINE
     Indication: SEDATION
     Dosage: 0.3 MILLIGRAM
     Route: 048
     Dates: start: 20171221
  76. OMEPRAZOLE. [Concomitant]
     Active Substance: OMEPRAZOLE
     Dosage: UNK
     Route: 065
     Dates: start: 20180119, end: 20180119
  77. LEXAPRO [Concomitant]
     Active Substance: ESCITALOPRAM OXALATE
     Indication: AGITATION
     Dosage: UNK
     Route: 065
     Dates: start: 20160906, end: 20170504
  78. BETHKIS [Suspect]
     Active Substance: TOBRAMYCIN
     Dosage: 300 MG/4ML, BID
     Route: 055
     Dates: start: 20180106, end: 20180113
  79. MIRALAX [Concomitant]
     Active Substance: POLYETHYLENE GLYCOL 3350
     Dosage: 17 GRAM
     Route: 048
     Dates: start: 20171215
  80. CALCARB [Concomitant]
     Indication: SUPPLEMENTATION THERAPY
     Dosage: 600 OT, BID
     Route: 048
     Dates: start: 20110613
  81. LANTUS [Concomitant]
     Active Substance: INSULIN GLARGINE
     Dosage: 60 DOSAGE FORM
     Route: 058
     Dates: start: 20180124
  82. DUONEB [Concomitant]
     Active Substance: ALBUTEROL SULFATE\IPRATROPIUM BROMIDE
     Dosage: 3 MILLILITER, Q8H (2.5-0.5 MG/3 ML)
     Route: 055
     Dates: start: 20180124
  83. CIPRO [Concomitant]
     Active Substance: CIPROFLOXACIN HYDROCHLORIDE
     Dosage: 400 MILLIGRAM, TID
     Route: 042
     Dates: start: 20180121
  84. MUCOMYST [Concomitant]
     Active Substance: ACETYLCYSTEINE
     Indication: INFECTIVE PULMONARY EXACERBATION OF CYSTIC FIBROSIS
     Dosage: 2 MILLILITER
     Route: 055
     Dates: start: 20180124
  85. MICAFUNGIN. [Concomitant]
     Active Substance: MICAFUNGIN SODIUM
     Indication: FUNGAL INFECTION
  86. VANCOMYCIN HCL USP [Suspect]
     Active Substance: VANCOMYCIN HYDROCHLORIDE
     Indication: PRODUCT USED FOR UNKNOWN INDICATION
     Dosage: 1250 MG, Q8H
     Route: 042
     Dates: start: 20171104, end: 20171106
  87. TOBI PODHALER [Suspect]
     Active Substance: TOBRAMYCIN
     Indication: PSEUDOMONAS INFECTION
     Dosage: UNK
     Route: 055
     Dates: start: 20160420, end: 20160517
  88. TOBI PODHALER [Suspect]
     Active Substance: TOBRAMYCIN
     Dosage: UNK
     Route: 055
     Dates: start: 20170219, end: 20170319
  89. VORICONAZOLE. [Suspect]
     Active Substance: VORICONAZOLE
     Indication: PRODUCT USED FOR UNKNOWN INDICATION
     Dosage: 450 MILLIGRAM, BID (EVERY 12 HOURS)
     Route: 042
     Dates: start: 20171104, end: 20171105
  90. VORICONAZOLE. [Suspect]
     Active Substance: VORICONAZOLE
     Dosage: 300 MG, BID (EVERY 12 HOURS)
     Route: 042
     Dates: start: 20171105, end: 20171113
  91. CAYSTON [Suspect]
     Active Substance: AZTREONAM
     Dosage: 75 MG, TID ALTERNATE MONTHS
     Route: 055
     Dates: start: 20180113, end: 20180121
  92. HYPERTONIC SALINE SOLUTION [Concomitant]
     Active Substance: SODIUM CHLORIDE
     Indication: COUGH
     Dosage: 70 PERCENT, QD
     Route: 065
     Dates: start: 20170512, end: 20171104
  93. PROPOFOL. [Concomitant]
     Active Substance: PROPOFOL
     Indication: SEDATION
     Dosage: UNK
     Route: 065
     Dates: start: 20171213
  94. ACTIGALL [Concomitant]
     Active Substance: URSODIOL
     Indication: CYSTIC FIBROSIS
     Dosage: 2 DOSAGE FORM, BID
     Route: 048
  95. TYLENOL [Concomitant]
     Active Substance: ACETAMINOPHEN
     Indication: PAIN
     Dosage: 2 DOSAGE FORM, 2 DF (325 MG), UNK
     Route: 048
  96. ORKAMBI [Concomitant]
     Active Substance: IVACAFTOR\LUMACAFTOR
     Indication: INFECTIVE PULMONARY EXACERBATION OF CYSTIC FIBROSIS
     Dosage: 2 DOSAGE FORM, BID  (200-125 MG)
     Route: 065
     Dates: start: 201706, end: 20171104
  97. PULMOZYME [Concomitant]
     Active Substance: DORNASE ALFA
     Dosage: 2.5 MILLILITER, QD
     Route: 055
     Dates: start: 20171212
  98. DUONEB [Concomitant]
     Active Substance: ALBUTEROL SULFATE\IPRATROPIUM BROMIDE
     Indication: INFECTIVE PULMONARY EXACERBATION OF CYSTIC FIBROSIS
     Dosage: 3 MILLILITER 3 ML (2.5 -0.5MG/3ML), UNK
     Route: 055
     Dates: start: 20171211
  99. DOXYCYCLINE. [Concomitant]
     Active Substance: DOXYCYCLINE
     Indication: INFECTIVE PULMONARY EXACERBATION OF CYSTIC FIBROSIS
     Dosage: 100 MILLIGRAM  (IV PIGGY BACK EVERY 12 HOURS)
     Route: 042
     Dates: start: 20180107
  100. VERAPAMIL [Concomitant]
     Active Substance: VERAPAMIL HYDROCHLORIDE
     Indication: HYPERTENSION
     Dosage: 120 MILLIGRAM
     Route: 042
     Dates: start: 20171225
  101. FENTANYL. [Concomitant]
     Active Substance: FENTANYL
     Indication: PAIN
     Dosage: UNK
     Dates: start: 20180119, end: 20180125
  102. ZOFRAN [Concomitant]
     Active Substance: ONDANSETRON HYDROCHLORIDE
     Indication: NAUSEA
     Dosage: UNK
     Route: 065
     Dates: start: 20180116, end: 20180125
  103. TOBI PODHALER [Suspect]
     Active Substance: TOBRAMYCIN
     Indication: CYSTIC FIBROSIS
     Dosage: UNK
     Route: 055
     Dates: start: 20160223, end: 20160321
  104. CAYSTON [Suspect]
     Active Substance: AZTREONAM
     Dosage: 75 MG, TID ALTERNATE MONTHS
     Route: 065
     Dates: start: 20170918, end: 20171014
  105. BETHKIS [Suspect]
     Active Substance: TOBRAMYCIN
     Dosage: 300 MG, BID
     Route: 055
     Dates: start: 20171212, end: 20171219
  106. OXYGEN. [Concomitant]
     Active Substance: OXYGEN
     Dosage: 7 LITER
     Route: 045
     Dates: start: 201610, end: 20171104
  107. BACTRIM DS [Concomitant]
     Active Substance: SULFAMETHOXAZOLE\TRIMETHOPRIM
     Indication: COUGH
  108. BACITRACIN. [Concomitant]
     Active Substance: BACITRACIN
     Indication: NASAL DISCOMFORT
     Dosage: UNK UNK, BID
     Route: 065
  109. Z-MAX [Concomitant]
     Indication: INFLAMMATION
     Dosage: 500 MILLIGRAM, 3XW
     Route: 048
  110. ROCURONIUM [Concomitant]
     Active Substance: ROCURONIUM BROMIDE
     Indication: SEDATION
     Dosage: UNK
     Route: 065
     Dates: start: 20171213
  111. PROBIOTIC                          /07343501/ [Concomitant]
     Active Substance: BIFIDOBACTERIUM LONGUM\LACTOBACILLUS ACIDOPHILUS
     Indication: PRODUCT USED FOR UNKNOWN INDICATION
     Dosage: 1 DOSAGE FORM, BID(WITH BREAKFAST AND DINNER)
     Route: 048
  112. TOBI [Concomitant]
     Active Substance: TOBRAMYCIN
     Dosage: 300 MILLIGRAM, BID (SMALL VOLUME NEBULIZER)
     Route: 055
     Dates: start: 20180106, end: 20180113
  113. MINOCYCLINE [Concomitant]
     Active Substance: MINOCYCLINE HYDROCHLORIDE
     Indication: PRODUCT USED FOR UNKNOWN INDICATION
     Dosage: 100 MILLIGRAM, BID
     Route: 048
     Dates: start: 20180103, end: 20180107
  114. ZITHROMAX [Concomitant]
     Active Substance: AZITHROMYCIN DIHYDRATE
     Indication: INFECTIVE PULMONARY EXACERBATION OF CYSTIC FIBROSIS
     Dosage: 250 MG, MWF
     Route: 048
     Dates: start: 20151001, end: 20171104
  115. HUMALOG [Concomitant]
     Active Substance: INSULIN LISPRO
     Indication: BLOOD GLUCOSE DECREASED
     Dosage: 18 U, UNK
     Route: 058
     Dates: start: 20171229
  116. MICAFUNGIN. [Concomitant]
     Active Substance: MICAFUNGIN SODIUM
     Indication: CYSTIC FIBROSIS
     Dosage: 100 MILLIGRAM, (IV PIGGY BACK DAILY)
     Route: 042
     Dates: start: 20180120
  117. OMEPRAZOLE. [Concomitant]
     Active Substance: OMEPRAZOLE
     Indication: CYSTIC FIBROSIS
     Dosage: UNK
     Route: 065
     Dates: start: 20140918, end: 20171128
  118. SODIUM CHLORIDE. [Concomitant]
     Active Substance: SODIUM CHLORIDE
     Dosage: UNK
     Route: 065
     Dates: start: 20180119, end: 20180119

REACTIONS (52)
  - Cough [Unknown]
  - Hypertension [Recovered/Resolved]
  - Weight decreased [Recovered/Resolved]
  - Intensive care unit acquired weakness [Fatal]
  - Bronchial haemorrhage [Recovered/Resolved]
  - Gastroenteritis norovirus [Recovered/Resolved]
  - Acute kidney injury [Recovered/Resolved]
  - Alkalosis hypochloraemic [Recovered/Resolved]
  - Hypertriglyceridaemia [Recovered/Resolved]
  - Hypervolaemia [Recovered/Resolved]
  - Insomnia [Recovered/Resolved]
  - Metabolic acidosis [Recovered/Resolved]
  - Constipation [Recovered/Resolved]
  - Pyrexia [Fatal]
  - Hypercapnia [Recovered/Resolved]
  - Generalised oedema [Recovered/Resolved]
  - Dysphagia [Recovered/Resolved]
  - Leukocytosis [Recovered/Resolved]
  - Tachycardia [Unknown]
  - Pneumonia [Fatal]
  - Acute respiratory distress syndrome [Fatal]
  - Dyspnoea [Fatal]
  - Paresis [Fatal]
  - Acute respiratory failure [Fatal]
  - Hypokalaemia [Recovered/Resolved]
  - Anaemia [Unknown]
  - Diarrhoea [Recovered/Resolved]
  - Blood creatinine increased [Recovered/Resolved]
  - Stenotrophomonas test positive [Unknown]
  - Thrombocytosis [Recovered/Resolved]
  - Glucose tolerance impaired [Fatal]
  - Sepsis [Unknown]
  - Infective exacerbation of bronchiectasis [Recovered/Resolved]
  - Asthenia [Not Recovered/Not Resolved]
  - Bronchitis chronic [Fatal]
  - Infective pulmonary exacerbation of cystic fibrosis [Fatal]
  - Granulocytosis [Unknown]
  - Haematuria [Recovered/Resolved]
  - Hyperglycaemia [Unknown]
  - Gastrointestinal disorder [Fatal]
  - Hypoxia [Recovered/Resolved]
  - Fungal disease carrier [Unknown]
  - Concomitant disease aggravated [Unknown]
  - Muscle atrophy [Unknown]
  - Haemoptysis [Unknown]
  - Iron deficiency [Recovered/Resolved]
  - Acidosis [Recovered/Resolved]
  - Cystic fibrosis [Fatal]
  - Bandaemia [Unknown]
  - Blood urea increased [Unknown]
  - Hypernatraemia [Recovered/Resolved]
  - Illness [Unknown]

NARRATIVE: CASE EVENT DATE: 20160303
